FAERS Safety Report 7120631-8 (Version None)
Quarter: 2010Q4

REPORT INFORMATION
  Report Type: 
  Country: None (occurrence: None)
  Receive Date: 20101124
  Receipt Date: 20101116
  Transmission Date: 20110411
  Serious: Yes (Other)
  Sender: FDA-Public Use
  Company Number: ES-PFIZER INC-2010150490

PATIENT
  Age: 55 Year
  Sex: Male
  Weight: 85.5 kg

DRUGS (6)
  1. SIROLIMUS [Suspect]
     Indication: IMMUNOSUPPRESSANT DRUG THERAPY
     Dosage: 7 MG, UNK
     Route: 048
     Dates: start: 20100907
  2. PROGRAF [Concomitant]
     Indication: IMMUNOSUPPRESSANT DRUG THERAPY
     Dosage: 2 MG, UNK
     Dates: start: 20101018, end: 20101025
  3. SIROLIMUS [Concomitant]
     Dosage: 2 MG, UNK
     Dates: start: 20101017, end: 20101104
  4. SIROLIMUS [Concomitant]
     Dosage: 7 MG, UNK
     Dates: start: 20101105
  5. PREDNISONE [Concomitant]
     Indication: IMMUNOSUPPRESSANT DRUG THERAPY
     Dosage: 10 MG, UNK
     Dates: start: 20101019
  6. MYCOPHENOLIC ACID [Concomitant]
     Dosage: 360 MG, UNK
     Dates: start: 20101025

REACTIONS (1)
  - BILIARY NEOPLASM [None]
